FAERS Safety Report 4358936-6 (Version None)
Quarter: 2004Q2

REPORT INFORMATION
  Report Type: 
  Country: None (occurrence: None)
  Receive Date: 20040511
  Receipt Date: 20040505
  Transmission Date: 20050107
  Serious: Yes (Hospitalization)
  Sender: FDA-Public Use
  Company Number: 200411435GDS

PATIENT
  Age: 70 Year
  Sex: Male

DRUGS (5)
  1. ASPIRIN [Suspect]
     Indication: PROPHYLAXIS
     Dosage: 100 MG, TOTAL DAILY, ORAL
     Route: 048
  2. SINTROM [Suspect]
     Indication: PROPHYLAXIS
     Dosage: PRN, ORAL
     Route: 048
     Dates: start: 20040407, end: 20040410
  3. NADROPARIN [Suspect]
     Indication: PROPHYLAXIS
     Dosage: 0.6 ML, TOTAL DAILY, SUBCUTANEOUS
     Route: 058
     Dates: start: 20040407
  4. FUROSEMIDE [Concomitant]
  5. ACEPRIL (ENALAPRIL) [Concomitant]

REACTIONS (7)
  - ANAEMIA [None]
  - CARDIAC FLUTTER [None]
  - DRUG INTERACTION [None]
  - EPISTAXIS [None]
  - MUSCLE HAEMORRHAGE [None]
  - PROTHROMBIN TIME PROLONGED [None]
  - RIGHT VENTRICULAR FAILURE [None]
